FAERS Safety Report 9388289 (Version 1)
Quarter: 2013Q3

REPORT INFORMATION
  Report Type: Spontaneous
  Country: US (occurrence: US)
  Receive Date: 20130708
  Receipt Date: 20130708
  Transmission Date: 20140515
  Serious: No
  Sender: FDA-Public Use
  Company Number: US-PFIZER INC-2013197390

PATIENT
  Age: 62 Year
  Sex: Male
  Weight: 81.63 kg

DRUGS (1)
  1. CLINDAMYCIN PHOSPHATE [Suspect]
     Indication: SKIN DISORDER
     Dosage: UNK
     Route: 061
     Dates: start: 201306

REACTIONS (1)
  - Alopecia [Unknown]
